FAERS Safety Report 7247622-0 (Version None)
Quarter: 2011Q1

REPORT INFORMATION
  Report Type: 
  Country: None (occurrence: None)
  Receive Date: 20110127
  Receipt Date: 20110119
  Transmission Date: 20110831
  Serious: Yes (Hospitalization)
  Sender: FDA-Public Use
  Company Number: US-US-EMD SERONO, INC.-7037412

PATIENT
  Sex: Female

DRUGS (2)
  1. REBIF [Suspect]
     Indication: MULTIPLE SCLEROSIS
     Route: 058
     Dates: start: 20100924
  2. UNSPECIFIED MEDICATIONS [Concomitant]

REACTIONS (3)
  - PANCREATITIS RELAPSING [None]
  - OESOPHAGEAL ULCER [None]
  - GASTRIC ULCER [None]
